FAERS Safety Report 8617732-1 (Version None)
Quarter: 2012Q3

REPORT INFORMATION
  Report Type: 
  Country: None (occurrence: None)
  Receive Date: 20120824
  Receipt Date: 20120209
  Transmission Date: 20120928
  Serious: No
  Sender: FDA-Public Use
  Company Number: US-ASTRAZENECA-2012SE04706

PATIENT
  Age: 27 Year
  Sex: Female
  Weight: 81.6 kg

DRUGS (5)
  1. INVEGA [Concomitant]
  2. SYMBICORT [Suspect]
     Indication: ASTHMA
     Dosage: 2 PUFFS BID
     Route: 055
  3. PREVACID [Concomitant]
  4. RITALIN [Concomitant]
  5. CYMBALTA [Concomitant]

REACTIONS (2)
  - SPEECH DISORDER [None]
  - DRUG DOSE OMISSION [None]
